FAERS Safety Report 25231850 (Version 1)
Quarter: 2025Q2

REPORT INFORMATION
  Report Type: Spontaneous
  Country: CN (occurrence: CN)
  Receive Date: 20250423
  Receipt Date: 20250423
  Transmission Date: 20250716
  Serious: Yes (Hospitalization)
  Sender: MYLAN
  Company Number: CN-MYLANLABS-2025M1034225

PATIENT
  Age: 71 Year
  Sex: Male

DRUGS (4)
  1. LIPITOR [Suspect]
     Active Substance: ATORVASTATIN CALCIUM
     Indication: Hyperlipidaemia
     Dosage: 1 DOSAGE FORM, QD
     Dates: start: 20250303, end: 20250326
  2. LIPITOR [Suspect]
     Active Substance: ATORVASTATIN CALCIUM
     Dosage: 1 DOSAGE FORM, QD
     Route: 065
     Dates: start: 20250303, end: 20250326
  3. LIPITOR [Suspect]
     Active Substance: ATORVASTATIN CALCIUM
     Dosage: 1 DOSAGE FORM, QD
     Route: 065
     Dates: start: 20250303, end: 20250326
  4. LIPITOR [Suspect]
     Active Substance: ATORVASTATIN CALCIUM
     Dosage: 1 DOSAGE FORM, QD
     Dates: start: 20250303, end: 20250326

REACTIONS (4)
  - Oliguria [Recovering/Resolving]
  - Pyrexia [Recovering/Resolving]
  - Blood creatine phosphokinase increased [Recovering/Resolving]
  - Hepatic enzyme increased [Recovering/Resolving]

NARRATIVE: CASE EVENT DATE: 20250326
